FAERS Safety Report 9677540 (Version 2)
Quarter: 2013Q4

REPORT INFORMATION
  Report Type: Spontaneous
  Country: JP (occurrence: JP)
  Receive Date: 20131108
  Receipt Date: 20131114
  Transmission Date: 20140711
  Serious: Yes (Hospitalization)
  Sender: FDA-Public Use
  Company Number: PHHY2013JP126708

PATIENT
  Age: 78 Year
  Sex: Female

DRUGS (1)
  1. CARBAMAZEPINE [Suspect]
     Route: 048

REACTIONS (4)
  - Tubulointerstitial nephritis [Recovering/Resolving]
  - Renal impairment [Recovering/Resolving]
  - Blood creatinine increased [Unknown]
  - Rash [Recovering/Resolving]
